FAERS Safety Report 9851842 (Version 1)
Quarter: 2013Q4

REPORT INFORMATION
  Report Type: Spontaneous
  Country: US (occurrence: None)
  Receive Date: 20131226
  Receipt Date: 20131226
  Transmission Date: 20140711
  Serious: Yes (Other)
  Sender: FDA-Public Use
  Company Number: PHEH2013US000700

PATIENT
  Age: 61 Year
  Sex: Female
  Weight: 71.7 kg

DRUGS (4)
  1. GILENYA (FINGOLIMOD) CAPSULE, 0.5MG [Suspect]
     Indication: MULTIPLE SCLEROSIS
     Route: 048
     Dates: start: 20111001
  2. AMPYRA (FAMPRIDINE) [Concomitant]
  3. FISH OIL (FISH OIL) [Concomitant]
  4. MULTI-VIT (VITAMINS NOS) [Concomitant]

REACTIONS (4)
  - Nasopharyngitis [None]
  - Influenza like illness [None]
  - Dysphonia [None]
  - Laryngitis [None]
